FAERS Safety Report 8336522-0 (Version None)
Quarter: 2012Q2

REPORT INFORMATION
  Report Type: 
  Country: None (occurrence: None)
  Receive Date: 20120504
  Receipt Date: 20120423
  Transmission Date: 20120825
  Serious: Yes (Death, Hospitalization)
  Sender: FDA-Public Use
  Company Number: TW-BRISTOL-MYERS SQUIBB COMPANY-16542193

PATIENT
  Age: 80 Year
  Sex: Male

DRUGS (4)
  1. ABACAVIR [Concomitant]
     Indication: HIV INFECTION
  2. LAMIVUDINE [Concomitant]
     Indication: HIV INFECTION
  3. DIDANOSINE [Suspect]
     Indication: HIV INFECTION
  4. NEVIRAPINE [Concomitant]
     Indication: HIV INFECTION

REACTIONS (10)
  - ABDOMINAL DISTENSION [None]
  - ASPARTATE AMINOTRANSFERASE INCREASED [None]
  - UPPER GASTROINTESTINAL HAEMORRHAGE [None]
  - PORTAL HYPERTENSION [None]
  - VARICES OESOPHAGEAL [None]
  - NAUSEA [None]
  - BLOOD ALKALINE PHOSPHATASE [None]
  - RESPIRATORY FAILURE [None]
  - GAMMA-GLUTAMYLTRANSFERASE INCREASED [None]
  - PORTAL VEIN THROMBOSIS [None]
